FAERS Safety Report 6861032 (Version 3)
Quarter: 2020Q3

REPORT INFORMATION
  Report Type: Report from Study
  Country: CA (occurrence: CA)
  Receive Date: 20081219
  Receipt Date: 20091127
  Transmission Date: 20201105
  Serious: Yes (Hospitalization)
  Sender: FDA-Public Use
  Company Number: CA-JNJFOC-20081204543

PATIENT
  Age: 69 Year
  Sex: Female
  Weight: 58.96 kg

DRUGS (22)
  1. TAPENTADOL HYDROCHLORIDE [Suspect]
     Active Substance: TAPENTADOL HYDROCHLORIDE
     Route: 048
  2. FOSAMAX [Concomitant]
     Active Substance: ALENDRONATE SODIUM
  3. VITAMIN D2 [Concomitant]
     Active Substance: ERGOCALCIFEROL
  4. GLUCOSAMINE [Concomitant]
     Active Substance: GLUCOSAMINE
  5. CALCIUM [Concomitant]
     Active Substance: CALCIUM
  6. ALTACE [Concomitant]
     Active Substance: RAMIPRIL
  7. TUMS [Concomitant]
     Active Substance: CALCIUM CARBONATE
  8. FLONASE [Concomitant]
     Active Substance: FLUTICASONE PROPIONATE
  9. GRAVOL [Concomitant]
     Active Substance: DIMENHYDRINATE
  10. TAPENTADOL HYDROCHLORIDE [Suspect]
     Active Substance: TAPENTADOL HYDROCHLORIDE
     Dosage: 200 MG PLUS 250 MG
     Route: 048
  11. NORVASC [Concomitant]
     Active Substance: AMLODIPINE BESYLATE
  12. FLUNISOLIDE. [Concomitant]
     Active Substance: FLUNISOLIDE
  13. TYLENOL [Concomitant]
     Active Substance: ACETAMINOPHEN
  14. MULTIVITAMINS [Concomitant]
     Active Substance: VITAMINS
  15. TAPENTADOL HYDROCHLORIDE [Suspect]
     Active Substance: TAPENTADOL HYDROCHLORIDE
     Route: 048
  16. PARIET [Concomitant]
     Active Substance: RABEPRAZOLE SODIUM
  17. ASA [Concomitant]
     Active Substance: ASPIRIN
  18. TAPENTADOL HYDROCHLORIDE [Suspect]
     Active Substance: TAPENTADOL HYDROCHLORIDE
     Dosage: 150 MG PLUS 200 MG
     Route: 048
  19. TAPENTADOL HYDROCHLORIDE [Suspect]
     Active Substance: TAPENTADOL HYDROCHLORIDE
     Indication: PAIN
     Dosage: 50 MG PLUS 100 MG
     Route: 048
  20. FUROSEMIDE. [Concomitant]
     Active Substance: FUROSEMIDE
  21. COLACE [Concomitant]
     Active Substance: DOCUSATE SODIUM
  22. AVELOX [Concomitant]
     Active Substance: MOXIFLOXACIN HYDROCHLORIDE

REACTIONS (1)
  - Colitis ischaemic [Recovered/Resolved]

NARRATIVE: CASE EVENT DATE: 20081127
